FAERS Safety Report 22394514 (Version 1)
Quarter: 2023Q2

REPORT INFORMATION
  Report Type: Spontaneous
  Country: CN (occurrence: None)
  Receive Date: 20230601
  Receipt Date: 20230601
  Transmission Date: 20230721
  Serious: Yes (Hospitalization)
  Sender: FDA-Public Use
  Company Number: CN-Eisai Medical Research-EC-2023-141136

PATIENT
  Age: 24 Year
  Sex: Female
  Weight: 50 kg

DRUGS (8)
  1. RABEPRAZOLE [Suspect]
     Active Substance: RABEPRAZOLE
     Indication: Helicobacter infection
     Dosage: DOSE AND FREQUENCY UNKNOWN
     Route: 048
     Dates: start: 20230421, end: 202304
  2. RABEPRAZOLE [Suspect]
     Active Substance: RABEPRAZOLE
     Route: 048
     Dates: start: 20230428, end: 20230430
  3. CLARITHROMYCIN [Suspect]
     Active Substance: CLARITHROMYCIN
     Indication: Helicobacter infection
     Dosage: DOSE AND FREQUENCY UNKNOWN
     Route: 048
     Dates: start: 20230421, end: 202304
  4. CLARITHROMYCIN [Suspect]
     Active Substance: CLARITHROMYCIN
     Route: 048
     Dates: start: 20230428, end: 20230430
  5. BISMUTH [Suspect]
     Active Substance: BISMUTH
     Indication: Helicobacter infection
     Dosage: DOSE AND FREQUENCY UNKNOWN
     Route: 048
     Dates: start: 20230421, end: 202304
  6. BISMUTH [Suspect]
     Active Substance: BISMUTH
     Route: 048
     Dates: start: 20230428, end: 20230430
  7. AMOXICILLIN [Suspect]
     Active Substance: AMOXICILLIN
     Indication: Helicobacter infection
     Dosage: DOSE AND FREQUENCY UKNOWN
     Route: 048
     Dates: start: 20230421, end: 202304
  8. AMOXICILLIN [Suspect]
     Active Substance: AMOXICILLIN
     Route: 048
     Dates: start: 20230428, end: 20230430

REACTIONS (1)
  - Rash maculo-papular [Recovering/Resolving]

NARRATIVE: CASE EVENT DATE: 20230430
